FAERS Safety Report 17025245 (Version 1)
Quarter: 2019Q4

REPORT INFORMATION
  Report Type: Spontaneous
  Country: US (occurrence: US)
  Receive Date: 20191113
  Receipt Date: 20191113
  Transmission Date: 20200122
  Serious: Yes (Other)
  Sender: FDA-Public Use
  Company Number: NVSC2019US032657

PATIENT
  Sex: Female
  Weight: 65.76 kg

DRUGS (3)
  1. IBRANCE [Suspect]
     Active Substance: PALBOCICLIB
     Indication: BREAST CANCER METASTATIC
     Dosage: 100 MG (1-21 OF 28 DAYS)
     Route: 048
     Dates: start: 201810
  2. ZOMETA [Suspect]
     Active Substance: ZOLEDRONIC ACID
     Indication: BREAST CANCER METASTATIC
     Dosage: UNK
     Route: 065
  3. FASLODEX [Suspect]
     Active Substance: FULVESTRANT
     Indication: BREAST CANCER METASTATIC
     Dosage: UNK
     Route: 065

REACTIONS (18)
  - Tinnitus [Unknown]
  - Nausea [Unknown]
  - Headache [Unknown]
  - Cough [Unknown]
  - Sensory disturbance [Unknown]
  - Muscle spasms [Unknown]
  - Chest pain [Unknown]
  - Decreased appetite [Unknown]
  - Fatigue [Unknown]
  - Dyspnoea [Unknown]
  - Weight increased [Unknown]
  - Pruritus [Unknown]
  - Dysuria [Unknown]
  - Bone pain [Unknown]
  - Vision blurred [Unknown]
  - Generalised anxiety disorder [Unknown]
  - Feeling abnormal [Unknown]
  - Dry mouth [Unknown]
